FAERS Safety Report 22273217 (Version 3)
Quarter: 2024Q1

REPORT INFORMATION
  Report Type: Report from Study
  Country: US (occurrence: US)
  Receive Date: 20230502
  Receipt Date: 20240311
  Transmission Date: 20240410
  Serious: Yes (Other)
  Sender: FDA-Public Use
  Company Number: US-ABBVIE-4744552

PATIENT
  Age: 12 Year
  Sex: Female

DRUGS (1)
  1. HUMIRA [Suspect]
     Active Substance: ADALIMUMAB
     Indication: Crohn^s disease
     Route: 058
     Dates: start: 20210806

REACTIONS (6)
  - Post procedural haemorrhage [Unknown]
  - Abdominal pain upper [Recovered/Resolved]
  - Polymenorrhoea [Not Recovered/Not Resolved]
  - Headache [Recovered/Resolved]
  - Lip discolouration [Recovered/Resolved]
  - Polymenorrhoea [Recovered/Resolved]

NARRATIVE: CASE EVENT DATE: 20220901
